FAERS Safety Report 6567344-9 (Version None)
Quarter: 2010Q1

REPORT INFORMATION
  Report Type: 
  Country: None (occurrence: None)
  Receive Date: 20100202
  Receipt Date: 20100122
  Transmission Date: 20100710
  Serious: Yes (Other)
  Sender: FDA-Public Use
  Company Number: PHHY2009MX20268

PATIENT
  Age: 32 Year
  Sex: Female

DRUGS (1)
  1. ZELMAC [Suspect]
     Indication: IRRITABLE BOWEL SYNDROME
     Dosage: 6 MG DAILY
     Route: 048
     Dates: start: 20090408, end: 20090501

REACTIONS (3)
  - CAESAREAN SECTION [None]
  - DELIVERY [None]
  - DRUG EXPOSURE DURING PREGNANCY [None]
